FAERS Safety Report 23578549 (Version 1)
Quarter: 2024Q1

REPORT INFORMATION
  Report Type: Spontaneous
  Country: US (occurrence: US)
  Receive Date: 20240229
  Receipt Date: 20240229
  Transmission Date: 20240409
  Serious: No
  Sender: FDA-Public Use
  Company Number: US-ABBVIE-5656973

PATIENT
  Sex: Female

DRUGS (1)
  1. LINZESS [Suspect]
     Active Substance: LINACLOTIDE
     Indication: Product used for unknown indication
     Dosage: 72G
     Route: 048

REACTIONS (4)
  - Dizziness [Unknown]
  - Muscle twitching [Unknown]
  - Nausea [Unknown]
  - Paraesthesia oral [Unknown]
